FAERS Safety Report 16702987 (Version 10)
Quarter: 2020Q3

REPORT INFORMATION
  Report Type: Spontaneous
  Country: US (occurrence: US)
  Receive Date: 20190814
  Receipt Date: 20200924
  Transmission Date: 20201102
  Serious: Yes (Hospitalization, Other)
  Sender: FDA-Public Use
  Company Number: US-UNITED THERAPEUTICS-UNT-2019-013156

PATIENT
  Age: 73 Year
  Sex: Female
  Weight: 53.97 kg

DRUGS (14)
  1. TYVASO [Suspect]
     Active Substance: TREPROSTINIL
     Dosage: 18?54 ?G, QID
  2. LETAIRIS [Concomitant]
     Active Substance: AMBRISENTAN
     Indication: PRODUCT USED FOR UNKNOWN INDICATION
     Dosage: UNK
     Route: 065
  3. TYVASO [Suspect]
     Active Substance: TREPROSTINIL
     Dosage: UNK
  4. ELIQUIS [Concomitant]
     Active Substance: APIXABAN
     Indication: PRODUCT USED FOR UNKNOWN INDICATION
     Dosage: UNK
     Route: 065
  5. PROLIA [Suspect]
     Active Substance: DENOSUMAB
     Indication: OSTEOPOROSIS
     Dosage: UNK (SINGLE?DOSE PREFILLED SYRINGE)
     Route: 065
  6. ADEMPAS [Concomitant]
     Active Substance: RIOCIGUAT
     Indication: PRODUCT USED FOR UNKNOWN INDICATION
     Dosage: 2.5 MG, TID
     Route: 065
  7. TYVASO [Suspect]
     Active Substance: TREPROSTINIL
     Dosage: UNK
  8. TYVASO [Suspect]
     Active Substance: TREPROSTINIL
     Dosage: UNK
  9. TYVASO [Suspect]
     Active Substance: TREPROSTINIL
     Dosage: UNK
  10. ADEMPAS [Concomitant]
     Active Substance: RIOCIGUAT
     Dosage: 1.5 MG, TID
     Route: 065
  11. TYVASO [Suspect]
     Active Substance: TREPROSTINIL
     Indication: PULMONARY ARTERIAL HYPERTENSION
     Dosage: UNK
     Dates: start: 20171017
  12. PANTOPRAZOLE [Concomitant]
     Active Substance: PANTOPRAZOLE
     Indication: PRODUCT USED FOR UNKNOWN INDICATION
     Dosage: UNK
     Route: 065
  13. DILANTIN [Suspect]
     Active Substance: PHENYTOIN
     Indication: PRODUCT USED FOR UNKNOWN INDICATION
     Dosage: UNK
     Route: 065
  14. OPSUMIT [Concomitant]
     Active Substance: MACITENTAN
     Indication: PRODUCT USED FOR UNKNOWN INDICATION
     Dosage: UNK
     Route: 065

REACTIONS (19)
  - Back pain [Recovered/Resolved]
  - Osteoporosis [Unknown]
  - Weight decreased [Unknown]
  - Mass [Unknown]
  - Sialoadenitis [Recovered/Resolved]
  - Thyroid hormones increased [Unknown]
  - Thoracic vertebral fracture [Recovered/Resolved]
  - White blood cell count decreased [Unknown]
  - Sleep disorder [Unknown]
  - Lumbar vertebral fracture [Not Recovered/Not Resolved]
  - Gait disturbance [Unknown]
  - Blister [Unknown]
  - Diarrhoea [Unknown]
  - Cellulitis [Recovered/Resolved]
  - Blood calcium decreased [Unknown]
  - Pain in extremity [Recovered/Resolved]
  - Hepatic cirrhosis [Unknown]
  - Intervertebral disc disorder [Recovered/Resolved]
  - White blood cell count increased [Unknown]

NARRATIVE: CASE EVENT DATE: 2019
